FAERS Safety Report 15303705 (Version 3)
Quarter: 2019Q1

REPORT INFORMATION
  Report Type: Report from Study
  Country: US (occurrence: US)
  Receive Date: 20180821
  Receipt Date: 20190130
  Transmission Date: 20190417
  Serious: Yes (Hospitalization, Other)
  Sender: FDA-Public Use
  Company Number: US-AMGEN INC.-USASL2018095698

PATIENT
  Age: 63 Year
  Sex: Female

DRUGS (2)
  1. AIMOVIG [Suspect]
     Active Substance: ERENUMAB-AOOE
     Indication: MIGRAINE
     Dosage: 140 MG, UNK
     Route: 065
     Dates: start: 20180701, end: 20181015
  2. IMITREX [Concomitant]
     Active Substance: SUMATRIPTAN SUCCINATE
     Indication: MIGRAINE
     Dosage: 100 UNK UNK

REACTIONS (5)
  - Drug effect incomplete [Unknown]
  - Bronchitis [Unknown]
  - Constipation [Recovering/Resolving]
  - Colitis ischaemic [Unknown]
  - Underdose [Unknown]

NARRATIVE: CASE EVENT DATE: 2018
